FAERS Safety Report 20781389 (Version 1)
Quarter: 2022Q2

REPORT INFORMATION
  Report Type: Spontaneous
  Country: US (occurrence: US)
  Receive Date: 20220504
  Receipt Date: 20220504
  Transmission Date: 20220721
  Serious: Yes (Hospitalization, Other)
  Sender: FDA-Public Use
  Company Number: US-LUPIN PHARMACEUTICALS INC.-2022-06450

PATIENT
  Age: 49 Year
  Sex: Male

DRUGS (3)
  1. VANCOMYCIN [Suspect]
     Active Substance: VANCOMYCIN
     Indication: Cellulitis
     Dosage: UNK
     Route: 065
  2. VANCOMYCIN [Suspect]
     Active Substance: VANCOMYCIN
     Indication: Evidence based treatment
     Dosage: UNK, PROPHYLACTIC PROSTHETIC CEMENT SPACER CONTAINING VANCOMYCIN AND TOBRAMYCIN
     Route: 065
  3. TOBRAMYCIN [Concomitant]
     Active Substance: TOBRAMYCIN
     Indication: Antibiotic prophylaxis
     Dosage: UNK, PROPHYLACTIC PROSTHETIC CEMENT SPACER CONTAINING VANCOMYCIN AND TOBRAMYCIN
     Route: 065

REACTIONS (3)
  - Linear IgA disease [Recovered/Resolved]
  - Periorbital oedema [Recovered/Resolved]
  - Off label use [Unknown]
